FAERS Safety Report 24252628 (Version 1)
Quarter: 2024Q3

REPORT INFORMATION
  Report Type: Report from Study
  Country: US (occurrence: US)
  Receive Date: 20240827
  Receipt Date: 20240827
  Transmission Date: 20241017
  Serious: Yes (Other)
  Sender: ABBVIE
  Company Number: US-ABBVIE-5891369

PATIENT
  Sex: Male

DRUGS (1)
  1. HUMIRA [Suspect]
     Active Substance: ADALIMUMAB
     Indication: Product used for unknown indication
     Route: 058
     Dates: start: 20240614

REACTIONS (10)
  - Loss of consciousness [Unknown]
  - Dermatitis contact [Unknown]
  - Dizziness [Unknown]
  - Hypoaesthesia [Unknown]
  - Fatigue [Unknown]
  - Hypersomnia [Unknown]
  - Asthenia [Unknown]
  - Paraesthesia [Unknown]
  - Gait disturbance [Unknown]
  - General symptom [Unknown]

NARRATIVE: CASE EVENT DATE: 20240101
